FAERS Safety Report 18745514 (Version 1)
Quarter: 2021Q1

REPORT INFORMATION
  Report Type: Spontaneous
  Country: US (occurrence: US)
  Receive Date: 20210115
  Receipt Date: 20210115
  Transmission Date: 20210419
  Serious: Yes (Other)
  Sender: FDA-Public Use
  Company Number: US-JNJFOC-20210116711

PATIENT
  Age: 90 Year
  Sex: Female
  Weight: 68.1 kg

DRUGS (1)
  1. XARELTO [Suspect]
     Active Substance: RIVAROXABAN
     Indication: POOR PERIPHERAL CIRCULATION
     Route: 048
     Dates: start: 20210108

REACTIONS (3)
  - Off label use [Unknown]
  - Product use in unapproved indication [Unknown]
  - Epistaxis [Unknown]

NARRATIVE: CASE EVENT DATE: 20210108
